FAERS Safety Report 16486403 (Version 1)
Quarter: 2019Q2

REPORT INFORMATION
  Report Type: Spontaneous
  Country: US (occurrence: US)
  Receive Date: 20190517
  Receipt Date: 20190517
  Transmission Date: 20190711
  Serious: Yes (Hospitalization)
  Sender: FDA-Public Use
  Company Number: None

PATIENT
  Age: 13 Year
  Sex: Female

DRUGS (8)
  1. TOBI [Concomitant]
     Active Substance: TOBRAMYCIN
  2. PULMOZYME [Concomitant]
     Active Substance: DORNASE ALFA
  3. TERBINAFINE. [Concomitant]
     Active Substance: TERBINAFINE
  4. HUMALOG [Concomitant]
     Active Substance: INSULIN LISPRO
  5. PERTZYE [Suspect]
     Active Substance: PANCRELIPASE AMYLASE\PANCRELIPASE LIPASE\PANCRELIPASE PROTEASE
     Indication: CYSTIC FIBROSIS
     Dosage: 16,000 6X ORAL
     Route: 048
     Dates: start: 20160923
  6. LANSOPRAZOLE. [Concomitant]
     Active Substance: LANSOPRAZOLE
  7. SIVEXTRO [Concomitant]
     Active Substance: TEDIZOLID PHOSPHATE
  8. AQUADEKS [Concomitant]
     Active Substance: MINERALS\VITAMINS

REACTIONS (2)
  - Infective pulmonary exacerbation of cystic fibrosis [None]
  - Bacterial infection [None]

NARRATIVE: CASE EVENT DATE: 201902
